FAERS Safety Report 5674796-5 (Version None)
Quarter: 2008Q1

REPORT INFORMATION
  Report Type: 
  Country: None (occurrence: None)
  Receive Date: 20080320
  Receipt Date: 20080311
  Transmission Date: 20080703
  Serious: Yes (Death)
  Sender: FDA-Public Use
  Company Number: PE-PFIZER INC-2008022193

PATIENT
  Sex: Male

DRUGS (4)
  1. LIPITOR [Suspect]
     Indication: HIGH DENSITY LIPOPROTEIN DECREASED
     Dates: start: 20050328, end: 20080118
  2. ASPIRIN [Suspect]
  3. DILATREND [Suspect]
     Dates: start: 20010101
  4. AMIODARONE HCL [Suspect]
     Dates: start: 20010101

REACTIONS (1)
  - CARDIAC DEATH [None]
